FAERS Safety Report 10251330 (Version 2)
Quarter: 2014Q2

REPORT INFORMATION
  Report Type: Report from Study
  Country: US (occurrence: US)
  Receive Date: 20140621
  Receipt Date: 20140627
  Transmission Date: 20141212
  Serious: Yes (Hospitalization)
  Sender: FDA-Public Use
  Company Number: US-009507513-1406USA009867

PATIENT
  Age: 73 Year
  Sex: Male
  Weight: 89.4 kg

DRUGS (4)
  1. VORINOSTAT [Suspect]
     Indication: CHRONIC MYELOMONOCYTIC LEUKAEMIA
     Dosage: SEVENTH CYCLE 300 MG, BID ON DAYS 3-9
     Route: 048
     Dates: start: 20140604, end: 20140610
  2. VORINOSTAT [Suspect]
     Dosage: FIRST CYCLE 300 MG, BID ON DAYS 3-9
     Route: 048
     Dates: start: 20131213, end: 20131219
  3. AZACITIDINE [Suspect]
     Indication: CHRONIC MYELOMONOCYTIC LEUKAEMIA
     Dosage: SEVENTH CYCLE 75 MG/M2 SQ OR IV  ON DAYS 1-7 OR 75 MG/M2 SQ OR IV ON DAYS 1-5 AND DAYS 8-9
     Route: 042
     Dates: start: 20140602, end: 20140608
  4. AZACITIDINE [Suspect]
     Dosage: FIRST CYCLE 75 MG/M2 SQ OR IV  ON DAYS 1-7 OR 75 MG/M2 SQ OR IV ON DAYS 1-5 AND DAYS 8-9
     Route: 042
     Dates: start: 20131211

REACTIONS (1)
  - Haematuria [Recovering/Resolving]
